FAERS Safety Report 7538235-1 (Version None)
Quarter: 2011Q2

REPORT INFORMATION
  Report Type: 
  Country: None (occurrence: None)
  Receive Date: 20110609
  Receipt Date: 20050817
  Transmission Date: 20111010
  Serious: Yes (Death, Life-Threatening, Hospitalization)
  Sender: FDA-Public Use
  Company Number: PHHO2003CA09044

PATIENT
  Sex: Male

DRUGS (4)
  1. CLOZARIL [Suspect]
     Indication: SCHIZOPHRENIA
     Dosage: 300 MG, QHS
     Route: 048
     Dates: start: 19980831
  2. CLOZARIL [Suspect]
     Route: 048
     Dates: start: 20041005, end: 20041219
  3. CLOZARIL [Suspect]
     Dates: start: 20050111
  4. ANTIBIOTICS [Concomitant]

REACTIONS (5)
  - ASTHMA [None]
  - EMPHYSEMA [None]
  - RESPIRATORY FAILURE [None]
  - CHRONIC OBSTRUCTIVE PULMONARY DISEASE [None]
  - PNEUMONIA [None]
